FAERS Safety Report 8224951 (Version 6)
Quarter: 2012Q4

REPORT INFORMATION
  Report Type: Report from Study
  Country: PL (occurrence: PL)
  Receive Date: 20111103
  Receipt Date: 20121219
  Transmission Date: 20130627
  Serious: Yes (Hospitalization, Other)
  Sender: FDA-Public Use
  Company Number: PL-ASTRAZENECA-2011SE64273

PATIENT
  Age: 14176 Day
  Sex: Male

DRUGS (17)
  1. VANDETANIB [Suspect]
     Indication: THYROID CANCER
     Route: 048
     Dates: start: 20110726, end: 20111024
  2. VANDETANIB [Suspect]
     Indication: THYROID CANCER
     Route: 048
     Dates: start: 20111202, end: 20120109
  3. HYDROCORTISON [Concomitant]
     Indication: ADRENALECTOMY
     Route: 048
  4. CALPEROS [Concomitant]
     Indication: HYPOPARATHYROIDISM
     Route: 048
  5. CALPEROS [Concomitant]
     Indication: HYPOPARATHYROIDISM
     Route: 048
     Dates: start: 20110908
  6. ALFADIOL [Concomitant]
     Indication: HYPOPARATHYROIDISM
     Route: 048
     Dates: end: 20110707
  7. ALFADIOL [Concomitant]
     Indication: HYPOPARATHYROIDISM
     Route: 048
     Dates: start: 20110708
  8. BISOCARD [Concomitant]
     Indication: HYPERTENSION
     Route: 048
  9. TRITACE [Concomitant]
     Indication: HYPERTENSION
     Route: 048
  10. LOPERAMIDE [Concomitant]
     Indication: DIARRHOEA
     Route: 048
  11. SANDOSTATIN LAR [Concomitant]
     Indication: DIARRHOEA
     Route: 030
     Dates: start: 20110421
  12. KALIPOZ [Concomitant]
     Indication: DIARRHOEA
     Route: 048
  13. KALIPOZ [Concomitant]
     Indication: HYPOKALAEMIA
     Route: 048
  14. BONEFOS [Concomitant]
     Indication: METASTASES TO BONE
     Route: 048
  15. EUTHYROX [Concomitant]
     Indication: HYPOTHYROIDISM
     Route: 048
     Dates: end: 20110908
  16. EUTHYROX [Concomitant]
     Indication: HYPOTHYROIDISM
     Route: 048
     Dates: start: 20110909, end: 20110919
  17. EUTHYROX [Concomitant]
     Indication: HYPOTHYROIDISM
     Route: 048
     Dates: start: 20110920

REACTIONS (1)
  - Urinary tract infection [Recovered/Resolved]
